FAERS Safety Report 10485675 (Version 1)
Quarter: 2014Q4

REPORT INFORMATION
  Report Type: Report from Study
  Country: BR (occurrence: BR)
  Receive Date: 20141001
  Receipt Date: 20141001
  Transmission Date: 20150528
  Serious: Yes (Hospitalization)
  Sender: FDA-Public Use
  Company Number: BR-ROCHE-1468357

PATIENT
  Sex: Female
  Weight: 94 kg

DRUGS (17)
  1. AMIODARONE [Concomitant]
     Active Substance: AMIODARONE
  2. PURAN [Concomitant]
     Active Substance: LEVOTHYROXINE SODIUM
  3. XARELTO [Concomitant]
     Active Substance: RIVAROXABAN
  4. RETEMIC [Concomitant]
     Active Substance: OXYBUTYNIN
  5. KETOROLAC [Concomitant]
     Active Substance: KETOROLAC\KETOROLAC TROMETHAMINE
  6. REUQUINOL [Concomitant]
     Active Substance: HYDROXYCHLOROQUINE SULFATE
  7. ROSUVASTATIN [Concomitant]
     Active Substance: ROSUVASTATIN
  8. PREDNISONE. [Concomitant]
     Active Substance: PREDNISONE
  9. CEBRALAT [Concomitant]
     Active Substance: CILOSTAZOL
  10. HALDOL [Concomitant]
     Active Substance: HALOPERIDOL
  11. ACTEMRA [Suspect]
     Active Substance: TOCILIZUMAB
     Indication: RHEUMATOID ARTHRITIS
     Route: 042
     Dates: start: 201208
  12. FUROSEMIDE. [Concomitant]
     Active Substance: FUROSEMIDE
  13. SELOZOK [Concomitant]
     Active Substance: METOPROLOL SUCCINATE
  14. PANTOPRAZOLE [Concomitant]
     Active Substance: PANTOPRAZOLE SODIUM
  15. SEROQUEL [Concomitant]
     Active Substance: QUETIAPINE FUMARATE
  16. SPIRONOLACTONE. [Concomitant]
     Active Substance: SPIRONOLACTONE
  17. DIGOXIN. [Concomitant]
     Active Substance: DIGOXIN

REACTIONS (2)
  - Cardiac fibrillation [Unknown]
  - Memory impairment [Not Recovered/Not Resolved]
